FAERS Safety Report 4814964-5 (Version None)
Quarter: 2005Q4

REPORT INFORMATION
  Report Type: 
  Country: None (occurrence: None)
  Receive Date: 20051028
  Receipt Date: 20051019
  Transmission Date: 20060501
  Serious: Yes (Hospitalization, Other)
  Sender: FDA-Public Use
  Company Number: DE-JNJFOC-20050600531

PATIENT
  Sex: Male

DRUGS (1)
  1. CONCERTA [Suspect]
     Route: 048

REACTIONS (8)
  - ALANINE AMINOTRANSFERASE INCREASED [None]
  - BLOOD LACTATE DEHYDROGENASE INCREASED [None]
  - CONFUSIONAL STATE [None]
  - LEUKOPENIA [None]
  - LIVER FUNCTION TEST ABNORMAL [None]
  - PAIN IN EXTREMITY [None]
  - PANCYTOPENIA [None]
  - PARAESTHESIA [None]
